FAERS Safety Report 7972855-5 (Version None)
Quarter: 2011Q4

REPORT INFORMATION
  Report Type: 
  Country: None (occurrence: None)
  Receive Date: 20111209
  Receipt Date: 20111123
  Transmission Date: 20120403
  Serious: Yes (Hospitalization)
  Sender: FDA-Public Use
  Company Number: 2011MA016200

PATIENT
  Age: 19 Year
  Sex: Male
  Weight: 66.4066 kg

DRUGS (2)
  1. GABAPENTIN [Suspect]
     Dosage: 300 MG; X1; PO
     Route: 048
     Dates: start: 20111018
  2. GRALISE [Suspect]
     Dosage: 300 MG; X1; PO
     Route: 048
     Dates: start: 20111011

REACTIONS (9)
  - MUSCLE TWITCHING [None]
  - PROTHROMBIN TIME PROLONGED [None]
  - UNRESPONSIVE TO STIMULI [None]
  - MEAN PLATELET VOLUME INCREASED [None]
  - ACTIVATED PARTIAL THROMBOPLASTIN TIME PROLONGED [None]
  - BLOOD GLUCOSE INCREASED [None]
  - CONVULSION [None]
  - LOSS OF CONSCIOUSNESS [None]
  - BLOOD CHLORIDE INCREASED [None]
